FAERS Safety Report 23128737 (Version 1)
Quarter: 2023Q4

REPORT INFORMATION
  Report Type: Spontaneous
  Country: US (occurrence: US)
  Receive Date: 20231031
  Receipt Date: 20231031
  Transmission Date: 20240110
  Serious: No
  Sender: FDA-Public Use
  Company Number: US-ELI_LILLY_AND_COMPANY-US202310014998

PATIENT
  Sex: Female

DRUGS (1)
  1. VERZENIO [Suspect]
     Active Substance: ABEMACICLIB
     Indication: Product used for unknown indication
     Dosage: 2 DOSAGE FORM, DAILY
     Route: 065

REACTIONS (10)
  - Amnesia [Unknown]
  - Confusional state [Unknown]
  - Bone pain [Unknown]
  - Abdominal pain upper [Unknown]
  - Dizziness [Unknown]
  - Cough [Unknown]
  - Alopecia [Unknown]
  - Dry mouth [Unknown]
  - Diarrhoea [Unknown]
  - Fatigue [Unknown]
